FAERS Safety Report 16141206 (Version 1)
Quarter: 2019Q2

REPORT INFORMATION
  Report Type: Spontaneous
  Country: US (occurrence: US)
  Receive Date: 20190331
  Receipt Date: 20190331
  Transmission Date: 20190711
  Serious: Yes (Disabling, Other)
  Sender: FDA-Public Use
  Company Number: None

PATIENT
  Age: 76 Year
  Sex: Female
  Weight: 45 kg

DRUGS (7)
  1. CALTRATE [Concomitant]
     Active Substance: CALCIUM CARBONATE
  2. VITAMIN D2 [Concomitant]
     Active Substance: ERGOCALCIFEROL
  3. GARDEN OF LIFE URINARY + (PROBIOTIC/CRANBERRY EXTRACT) [Concomitant]
  4. PRESER VISION [Concomitant]
  5. PROTONIX [Concomitant]
     Active Substance: PANTOPRAZOLE SODIUM
  6. SULFAMETH/TRIMETHOPRIM (800/160MG) [Suspect]
     Active Substance: SULFAMETHOXAZOLE\TRIMETHOPRIM
     Indication: URINARY TRACT INFECTION
     Dosage: ?          QUANTITY:14 TABLET(S);?
     Route: 048
     Dates: start: 20190325, end: 20190326
  7. LEVOTHYROXINE. [Concomitant]
     Active Substance: LEVOTHYROXINE

REACTIONS (8)
  - Erythema [None]
  - Confusional state [None]
  - Asthenia [None]
  - Somnolence [None]
  - Lethargy [None]
  - Pruritus [None]
  - Decreased appetite [None]
  - Feeling abnormal [None]

NARRATIVE: CASE EVENT DATE: 20190325
